FAERS Safety Report 19145389 (Version 1)
Quarter: 2021Q2

REPORT INFORMATION
  Report Type: Spontaneous
  Country: DE (occurrence: DE)
  Receive Date: 20210416
  Receipt Date: 20210416
  Transmission Date: 20210717
  Serious: Yes (Hospitalization)
  Sender: FDA-Public Use
  Company Number: DE-MICRO LABS LIMITED-ML2021-01087

PATIENT
  Age: 78 Year
  Sex: Male

DRUGS (6)
  1. CYANOCOBALAMIN. [Concomitant]
     Active Substance: CYANOCOBALAMIN
     Dosage: 0.025 MG, 1?0?0?0
  2. DICLOFENAC [Suspect]
     Active Substance: DICLOFENAC
     Dosage: 50 MG, 1?0?0?0
  3. HYDROCHLOROTHIAZIDE WITH TRIAMTERENE [Concomitant]
     Active Substance: HYDROCHLOROTHIAZIDE\TRIAMTERENE
     Dosage: NK MG, 1?0?0?0
  4. PRAVASTATIN. [Concomitant]
     Active Substance: PRAVASTATIN
     Dosage: 10 MG, 0?0?1?0
  5. EDOXABAN [Suspect]
     Active Substance: EDOXABAN TOSYLATE
     Dosage: 60 MG, 1?0?0?0
  6. PREDNISOLON [Suspect]
     Active Substance: PREDNISOLONE
     Dosage: 20 MG, 1?0?0?0

REACTIONS (7)
  - Pallor [Unknown]
  - Dyspnoea [Unknown]
  - General physical health deterioration [Unknown]
  - Condition aggravated [Unknown]
  - Anaemia [Unknown]
  - Labelled drug-drug interaction medication error [Unknown]
  - Oedema peripheral [Unknown]
